FAERS Safety Report 5072127-5 (Version None)
Quarter: 2006Q3

REPORT INFORMATION
  Report Type: 
  Country: None (occurrence: None)
  Receive Date: 20060807
  Receipt Date: 20060628
  Transmission Date: 20061208
  Serious: Yes (Hospitalization, Other)
  Sender: FDA-Public Use
  Company Number: CA-BAYER-200612733GDS

PATIENT
  Age: 61 Year
  Sex: Female

DRUGS (5)
  1. AVELOX [Suspect]
     Indication: LUNG INFECTION
     Dosage: TOTAL DAILY DOSE: 400 MG  UNIT DOSE: 400 MG
     Route: 048
     Dates: start: 20051124, end: 20051124
  2. ALTACE [Concomitant]
     Indication: HYPERTENSION
     Route: 048
  3. FLOVENT [Concomitant]
     Indication: ASTHMA
     Route: 055
  4. MODURET [Concomitant]
     Indication: HYPERTENSION
     Route: 048
  5. RATIO-SALBUTAMOL [Concomitant]
     Indication: ASTHMA
     Route: 055

REACTIONS (9)
  - ASTHENIA [None]
  - BLOOD PRESSURE FLUCTUATION [None]
  - DYSPNOEA [None]
  - EPISTAXIS [None]
  - HEAD INJURY [None]
  - HYPERTENSION [None]
  - HYPOTENSION [None]
  - LOSS OF CONSCIOUSNESS [None]
  - VOMITING [None]
